FAERS Safety Report 5266632-6 (Version None)
Quarter: 2007Q1

REPORT INFORMATION
  Report Type: 
  Country: None (occurrence: None)
  Receive Date: 20070312
  Receipt Date: 20070305
  Transmission Date: 20070707
  Serious: Yes (Death)
  Sender: FDA-Public Use
  Company Number: 237774

PATIENT
  Sex: Female

DRUGS (2)
  1. MABTHERA(RITUXIMAB) CONC FOR SOLUTION FOR INFUSION [Suspect]
     Indication: SYSTEMIC LUPUS ERYTHEMATOSUS
     Dosage: 1 G, SINGLE,
  2. ANTIBIOTICS NOS (ANTIOTICS NOS) [Concomitant]

REACTIONS (1)
  - SHOCK [None]
